FAERS Safety Report 7488960-6 (Version None)
Quarter: 2011Q2

REPORT INFORMATION
  Report Type: 
  Country: None (occurrence: None)
  Receive Date: 20110518
  Receipt Date: 20110512
  Transmission Date: 20111010
  Serious: Yes (Life-Threatening, Other)
  Sender: FDA-Public Use
  Company Number: US-ASTRAZENECA-2011SE20840

PATIENT
  Sex: Female

DRUGS (3)
  1. NEXIUM [Suspect]
     Indication: GASTROOESOPHAGEAL REFLUX DISEASE
     Route: 048
  2. PRILOSEC [Suspect]
     Route: 048
  3. PREVACID [Suspect]
     Route: 065

REACTIONS (14)
  - CHEST PAIN [None]
  - NEOPLASM MALIGNANT [None]
  - AUTOIMMUNE HEPATITIS [None]
  - OROPHARYNGEAL PAIN [None]
  - ACCIDENT AT WORK [None]
  - DRUG DOSE OMISSION [None]
  - T-CELL LYMPHOMA [None]
  - REGURGITATION [None]
  - DRUG INEFFECTIVE [None]
  - TERMINAL STATE [None]
  - LIMB OPERATION [None]
  - VOMITING [None]
  - BILIARY CIRRHOSIS PRIMARY [None]
  - MALAISE [None]
